FAERS Safety Report 10598413 (Version 1)
Quarter: 2014Q4

REPORT INFORMATION
  Report Type: Spontaneous
  Country: US (occurrence: None)
  Receive Date: 20141118
  Receipt Date: 20141118
  Transmission Date: 20150529
  Serious: Yes (Other)
  Sender: FDA-Public Use
  Company Number: FK201304846

PATIENT
  Age: 63 Year
  Sex: Male
  Weight: 79.4 kg

DRUGS (6)
  1. FISH OIL [Concomitant]
     Active Substance: FISH OIL
  2. XYLOCAINE WITH EPINEPHRINE [Suspect]
     Active Substance: EPINEPHRINE BITARTRATE\LIDOCAINE HYDROCHLORIDE
     Indication: NASAL SEPTAL OPERATION
     Dosage: UNKNOWN , UNKNOWN, NASAL INJECTION
  3. FINASTERIDE. [Concomitant]
     Active Substance: FINASTERIDE
  4. ALLLER-TED. [Concomitant]
  5. MVI [Concomitant]
     Active Substance: VITAMINS
  6. RAPAFLO [Concomitant]
     Active Substance: SILODOSIN

REACTIONS (2)
  - Hypertension [None]
  - Cardiac arrest [None]

NARRATIVE: CASE EVENT DATE: 20130913
